FAERS Safety Report 16750622 (Version 1)
Quarter: 2019Q3

REPORT INFORMATION
  Report Type: Report from Study
  Country: ZA (occurrence: ZA)
  Receive Date: 20190828
  Receipt Date: 20190828
  Transmission Date: 20191005
  Serious: Yes (Other)
  Sender: FDA-Public Use
  Company Number: ZA-ROCHE-2390413

PATIENT

DRUGS (3)
  1. PRILOCAINE HYDROCHLORIDE. [Concomitant]
     Active Substance: PRILOCAINE HYDROCHLORIDE
     Route: 065
  2. DIAZEPAM. [Suspect]
     Active Substance: DIAZEPAM
     Indication: SEDATION
     Dosage: MAXIMUM DOSE 20 MG
     Route: 040
  3. MIDAZOLAM [Suspect]
     Active Substance: MIDAZOLAM HYDROCHLORIDE
     Indication: SEDATION
     Dosage: MAXIMUM DOSE 8 MG
     Route: 040

REACTIONS (2)
  - Tachycardia [Unknown]
  - Bradycardia [Unknown]
